FAERS Safety Report 15308692 (Version 3)
Quarter: 2018Q4

REPORT INFORMATION
  Report Type: Report from Study
  Country: CA (occurrence: CA)
  Receive Date: 20180822
  Receipt Date: 20181214
  Transmission Date: 20190204
  Serious: Yes (Other)
  Sender: FDA-Public Use
  Company Number: CA-BEH-2018093780

PATIENT
  Age: 68 Year
  Sex: Female

DRUGS (4)
  1. HIZENTRA [Suspect]
     Active Substance: HUMAN IMMUNOGLOBULIN G
     Indication: IMMUNODEFICIENCY COMMON VARIABLE
  2. HIZENTRA [Suspect]
     Active Substance: HUMAN IMMUNOGLOBULIN G
     Indication: PRIMARY IMMUNODEFICIENCY SYNDROME
     Dosage: 8 G, QW
     Route: 058
     Dates: start: 20160216
  3. PROGESTERONE. [Concomitant]
     Active Substance: PROGESTERONE
  4. VALTREX [Concomitant]
     Active Substance: VALACYCLOVIR HYDROCHLORIDE

REACTIONS (7)
  - Paraesthesia [Unknown]
  - Nerve root compression [Recovering/Resolving]
  - Feeling hot [Unknown]
  - Exostosis [Recovering/Resolving]
  - Pain [Unknown]
  - Neuropathy peripheral [Unknown]
  - Pain in extremity [Unknown]
